FAERS Safety Report 21271580 (Version 1)
Quarter: 2022Q3

REPORT INFORMATION
  Report Type: Spontaneous
  Country: US (occurrence: US)
  Receive Date: 20220830
  Receipt Date: 20220830
  Transmission Date: 20221026
  Serious: No
  Sender: FDA-Public Use
  Company Number: US-TAKEDA-2022TUS058716

PATIENT
  Sex: Male
  Weight: 104 kg

DRUGS (5)
  1. VYVANSE [Suspect]
     Active Substance: LISDEXAMFETAMINE DIMESYLATE
     Indication: Fatigue
     Dosage: 30 MILLIGRAM
     Route: 065
  2. VYVANSE [Suspect]
     Active Substance: LISDEXAMFETAMINE DIMESYLATE
     Dosage: 10 MILLIGRAM
     Route: 065
  3. BYSTOLIC [Concomitant]
     Active Substance: NEBIVOLOL HYDROCHLORIDE
     Indication: Blood pressure abnormal
  4. MODAFINIL [Concomitant]
     Active Substance: MODAFINIL
  5. NUVIGIL [Concomitant]
     Active Substance: ARMODAFINIL

REACTIONS (7)
  - Therapeutic response shortened [Unknown]
  - Off label use [Unknown]
  - Fatigue [Unknown]
  - Muscular weakness [Unknown]
  - Dry mouth [Unknown]
  - Lethargy [Unknown]
  - Inappropriate schedule of product administration [Unknown]
